FAERS Safety Report 6217395-9 (Version None)
Quarter: 2009Q2

REPORT INFORMATION
  Report Type: 
  Country: None (occurrence: None)
  Receive Date: 20090608
  Receipt Date: 20080909
  Transmission Date: 20091009
  Serious: No
  Sender: FDA-Public Use
  Company Number: A0746805A

PATIENT
  Age: 34 Year
  Sex: Female

DRUGS (3)
  1. WELLBUTRIN XL [Suspect]
     Indication: IRRITABILITY
     Dosage: 150MG PER DAY
     Route: 048
     Dates: start: 20080905
  2. LUNESTA [Concomitant]
  3. IMITREX [Concomitant]

REACTIONS (5)
  - FATIGUE [None]
  - FLAT AFFECT [None]
  - HEADACHE [None]
  - INSOMNIA [None]
  - MIGRAINE [None]
